FAERS Safety Report 7336518-1 (Version None)
Quarter: 2011Q1

REPORT INFORMATION
  Report Type: 
  Country: None (occurrence: None)
  Receive Date: 20110307
  Receipt Date: 20110225
  Transmission Date: 20110831
  Serious: Yes (Other)
  Sender: FDA-Public Use
  Company Number: US-BAXTER-2011BH004827

PATIENT
  Age: 65 Year
  Sex: Male

DRUGS (2)
  1. VANCOMYCIN ANTIBIOTIC SPACER [Suspect]
     Indication: ARTHRITIS BACTERIAL
     Route: 065
  2. VANCOMYCIN HCL [Suspect]
     Indication: ARTHRITIS BACTERIAL
     Route: 042

REACTIONS (7)
  - FACE OEDEMA [None]
  - EOSINOPHILIA [None]
  - RENAL FAILURE ACUTE [None]
  - SHOCK [None]
  - LEUKOCYTURIA [None]
  - RASH [None]
  - WHEEZING [None]
